FAERS Safety Report 7521459-7 (Version None)
Quarter: 2011Q2

REPORT INFORMATION
  Report Type: 
  Country: None (occurrence: None)
  Receive Date: 20110603
  Receipt Date: 20110510
  Transmission Date: 20111010
  Serious: Yes (Death, Hospitalization, Disabling, Other)
  Sender: FDA-Public Use
  Company Number: JP-BAYER-201015249BYL

PATIENT
  Age: 74 Year
  Sex: Male
  Weight: 62 kg

DRUGS (10)
  1. NEXAVAR [Suspect]
     Indication: HEPATIC NEOPLASM MALIGNANT
     Dosage: 400 MG, BID
     Route: 048
     Dates: start: 20100901, end: 20100924
  2. OLMESARTAN MEDOXOMIL [Concomitant]
     Dosage: 20 MG, QD
     Route: 048
  3. BISOLVON [Concomitant]
     Dosage: 3 MG, QD
     Route: 048
     Dates: start: 20100824
  4. LACTEC [Concomitant]
     Dosage: 500 ML, QD
     Route: 042
     Dates: start: 20100927, end: 20100927
  5. AMLODIPINE [Concomitant]
     Dosage: 5 MG, QD
     Route: 048
  6. KERATINAMIN [Concomitant]
     Dosage: UNK
     Route: 061
     Dates: start: 20100901
  7. OXYCONTIN [Concomitant]
     Dosage: 10 MG, QD
     Route: 048
     Dates: start: 20100821, end: 20101008
  8. LANSOPRAZOLE [Concomitant]
     Dosage: 30 MG, QD
     Route: 048
     Dates: start: 20100829
  9. OPSO [Concomitant]
     Dosage: 5 MG, PRN
     Route: 048
     Dates: start: 20100810
  10. MAGNESIUM SULFATE [Concomitant]
     Dosage: 990 MG, QD
     Route: 048
     Dates: start: 20100823

REACTIONS (7)
  - VOMITING [None]
  - GENERAL PHYSICAL HEALTH DETERIORATION [None]
  - NAUSEA [None]
  - DECREASED APPETITE [None]
  - PNEUMONIA ASPIRATION [None]
  - FATIGUE [None]
  - HYPERTENSION [None]
